FAERS Safety Report 24673667 (Version 2)
Quarter: 2024Q4

REPORT INFORMATION
  Report Type: Report from Study
  Country: US (occurrence: US)
  Receive Date: 20241128
  Receipt Date: 20241223
  Transmission Date: 20250115
  Serious: Yes (Other)
  Sender: ROCHE
  Company Number: US-ROCHE-10000137583

PATIENT
  Age: 56 Year
  Sex: Female

DRUGS (1)
  1. OCREVUS [Suspect]
     Active Substance: OCRELIZUMAB
     Indication: Multiple sclerosis
     Dosage: MORE DOSAGE INFORMATION IS 300 MG SINGLE-USE VIAL
     Route: 042

REACTIONS (12)
  - Major depression [Unknown]
  - Dysphagia [Unknown]
  - Cognitive disorder [Unknown]
  - Asthenia [Unknown]
  - Oral candidiasis [Unknown]
  - Type 2 diabetes mellitus [Unknown]
  - Hyperlipidaemia [Unknown]
  - Restless legs syndrome [Unknown]
  - Migraine [Unknown]
  - Polyneuropathy [Unknown]
  - Constipation [Unknown]
  - Femur fracture [Unknown]
